FAERS Safety Report 11657931 (Version 1)
Quarter: 2015Q4

REPORT INFORMATION
  Report Type: Spontaneous
  Country: BR (occurrence: BR)
  Receive Date: 20151023
  Receipt Date: 20151023
  Transmission Date: 20160304
  Serious: Yes (Other)
  Sender: FDA-Public Use
  Company Number: BR-ASTRAZENECA-2015SF01537

PATIENT
  Age: 41 Year
  Sex: Male

DRUGS (4)
  1. METFORMIN [Suspect]
     Active Substance: METFORMIN HYDROCHLORIDE
     Indication: TYPE 2 DIABETES MELLITUS
     Dosage: NON-AZ PRODUCT
     Route: 065
  2. KOMBIGLYZE XR [Suspect]
     Active Substance: METFORMIN HYDROCHLORIDE\SAXAGLIPTIN HYDROCHLORIDE
     Dosage: 2,5/1000 BID
     Route: 048
  3. GLIBENCLAMIDE [Concomitant]
     Active Substance: GLYBURIDE
     Route: 065
  4. FORXIGA [Suspect]
     Active Substance: DAPAGLIFLOZIN
     Route: 048

REACTIONS (3)
  - Blood glucose increased [Unknown]
  - Asthenia [Unknown]
  - Nocturia [Unknown]
